FAERS Safety Report 11937507 (Version 1)
Quarter: 2016Q1

REPORT INFORMATION
  Report Type: Not Available
  Country: GB (occurrence: GB)
  Receive Date: 20160121
  Receipt Date: 20160121
  Transmission Date: 20160526
  Serious: Yes (Life-Threatening, Hospitalization)
  Sender: FDA-Public Use
  Company Number: GB-ANIPHARMA-2016-UK-000002

PATIENT
  Weight: 60 kg

DRUGS (4)
  1. VENLAFAXINE [Suspect]
     Active Substance: VENLAFAXINE HYDROCHLORIDE
  2. ALCOHOL. [Suspect]
     Active Substance: ALCOHOL
  3. AMITRIPTYLINE (NON-SPECIFIC) [Suspect]
     Active Substance: AMITRIPTYLINE
     Dosage: 4.8 G
     Route: 048
  4. ZOPICLONE [Suspect]
     Active Substance: ZOPICLONE

REACTIONS (4)
  - Electrocardiogram QT prolonged [Unknown]
  - Unresponsive to stimuli [Unknown]
  - Hypotension [Unknown]
  - Acute respiratory distress syndrome [Unknown]
